FAERS Safety Report 9903207 (Version 1)
Quarter: 2014Q1

REPORT INFORMATION
  Report Type: Spontaneous
  Country: US (occurrence: US)
  Receive Date: 20140217
  Receipt Date: 20140217
  Transmission Date: 20141002
  Serious: No
  Sender: FDA-Public Use
  Company Number: US-ASTRAZENECA-2013SE74069

PATIENT
  Age: 64 Year
  Sex: Female
  Weight: 67.6 kg

DRUGS (8)
  1. ATENOLOL [Suspect]
     Indication: HYPERTENSION
     Route: 065
     Dates: start: 201305
  2. TOPROL XL [Suspect]
     Indication: HYPERTENSION
     Route: 048
  3. TOPROL XL [Suspect]
     Indication: HYPERTENSION
     Route: 048
     Dates: start: 2007
  4. TOPROL XL [Suspect]
     Indication: HYPERTENSION
     Dosage: WATSON , 50MG DAILY
     Route: 065
     Dates: start: 201303, end: 201305
  5. CELEBREX [Concomitant]
     Indication: RHEUMATOID ARTHRITIS
     Route: 048
  6. ACTONEL [Concomitant]
     Indication: OSTEOPOROSIS
  7. XELJANZ [Concomitant]
     Indication: RHEUMATOID ARTHRITIS
  8. METOPROLOL TARTRATE [Concomitant]
     Indication: BLOOD PRESSURE ABNORMAL

REACTIONS (7)
  - Dry mouth [Not Recovered/Not Resolved]
  - Food allergy [Not Recovered/Not Resolved]
  - Musculoskeletal discomfort [Recovered/Resolved]
  - Oropharyngeal pain [Recovered/Resolved]
  - Drug intolerance [Unknown]
  - Adverse drug reaction [Unknown]
  - Drug dose omission [Unknown]
